FAERS Safety Report 9817177 (Version 1)
Quarter: 2014Q1

REPORT INFORMATION
  Report Type: Spontaneous
  Country: IT (occurrence: IT)
  Receive Date: 20140114
  Receipt Date: 20140114
  Transmission Date: 20141002
  Serious: Yes (Hospitalization)
  Sender: FDA-Public Use
  Company Number: PHHY2014IT003150

PATIENT
  Sex: Female

DRUGS (1)
  1. AMOXICILLIN [Suspect]
     Indication: RHINITIS
     Dosage: 1 OT, ONCE/SINGLE
     Route: 048
     Dates: start: 20140104, end: 20140104

REACTIONS (2)
  - Abdominal pain [Recovered/Resolved]
  - Urticaria [Recovered/Resolved]
